FAERS Safety Report 22156518 (Version 1)
Quarter: 2023Q1

REPORT INFORMATION
  Report Type: Report from Study
  Country: IL (occurrence: IL)
  Receive Date: 20230330
  Receipt Date: 20230330
  Transmission Date: 20230418
  Serious: Yes (Other)
  Sender: FDA-Public Use
  Company Number: IL-002147023-NVSC2023IL063693

PATIENT
  Age: 27 Year
  Sex: Female
  Weight: 90 kg

DRUGS (2)
  1. HYRIMOZ [Suspect]
     Active Substance: ADALIMUMAB-ADAZ
     Indication: Crohn^s disease
     Dosage: 160, Q2W
     Route: 058
     Dates: start: 20230310
  2. ASPIRIN [Suspect]
     Active Substance: ASPIRIN
     Indication: Pre-eclampsia
     Dosage: 100 MG
     Route: 048

REACTIONS (3)
  - Placenta praevia [Recovering/Resolving]
  - Abdominal pain [Not Recovered/Not Resolved]
  - Maternal exposure during pregnancy [Unknown]

NARRATIVE: CASE EVENT DATE: 20230310
